FAERS Safety Report 5890868-4 (Version None)
Quarter: 2008Q3

REPORT INFORMATION
  Report Type: 
  Country: None (occurrence: None)
  Receive Date: 20080922
  Receipt Date: 20080911
  Transmission Date: 20090109
  Serious: Yes (Hospitalization)
  Sender: FDA-Public Use
  Company Number: US-AVENTIS-200718369US

PATIENT
  Sex: Male

DRUGS (1)
  1. KETEK [Suspect]
     Indication: PNEUMONIA
     Dosage: DOSE: UNK
     Dates: start: 20050402

REACTIONS (12)
  - ABDOMINAL PAIN [None]
  - HEPATITIS ACUTE [None]
  - HYPOTENSION [None]
  - INTERNATIONAL NORMALISED RATIO INCREASED [None]
  - JAUNDICE [None]
  - LABORATORY TEST ABNORMAL [None]
  - LEUKOCYTOSIS [None]
  - LIVER FUNCTION TEST ABNORMAL [None]
  - NAUSEA [None]
  - PANCREATITIS [None]
  - RENAL FAILURE ACUTE [None]
  - RESPIRATORY FAILURE [None]
